FAERS Safety Report 9087034 (Version 1)
Quarter: 2013Q1

REPORT INFORMATION
  Report Type: Spontaneous
  Country: FR (occurrence: FR)
  Receive Date: 20130131
  Receipt Date: 20130131
  Transmission Date: 20140127
  Serious: Yes (Hospitalization)
  Sender: FDA-Public Use
  Company Number: FR-PFIZER INC-2013036206

PATIENT
  Age: 46 Year
  Sex: Male

DRUGS (4)
  1. LYRICA [Suspect]
     Dosage: 300 MG, 2X/DAY
     Route: 048
  2. GILENYA [Suspect]
     Indication: MULTIPLE SCLEROSIS
     Dosage: 0.5 MG, 1X/DAY
     Route: 048
     Dates: start: 20111220
  3. SERETIDE [Suspect]
     Indication: BRONCHOSPASM
     Dosage: UNK
     Route: 055
     Dates: start: 20120113
  4. SIFROL [Suspect]
     Dosage: UNK
     Route: 048

REACTIONS (1)
  - Testicular necrosis [Recovered/Resolved]
